FAERS Safety Report 8152971-8 (Version None)
Quarter: 2012Q1

REPORT INFORMATION
  Report Type: 
  Country: None (occurrence: None)
  Receive Date: 20120103
  Receipt Date: 20111027
  Transmission Date: 20120608
  Serious: No
  Sender: FDA-Public Use
  Company Number: AE-2011-002791

PATIENT
  Age: 50 Year
  Sex: Female
  Weight: 74.8435 kg

DRUGS (5)
  1. INCIVEK [Suspect]
     Dosage: 2571.4286 MG (750 MG,1 IN 7 HR),ORAL
     Route: 048
     Dates: start: 20111023
  2. PEGASYS [Concomitant]
  3. EFFEXOR [Concomitant]
  4. CLONAZEPAM [Concomitant]
  5. RIBAVIRIN [Concomitant]

REACTIONS (1)
  - RASH PRURITIC [None]
